FAERS Safety Report 20378997 (Version 2)
Quarter: 2022Q2

REPORT INFORMATION
  Report Type: Spontaneous
  Country: US (occurrence: US)
  Receive Date: 20220126
  Receipt Date: 20220426
  Transmission Date: 20220721
  Serious: Yes (Life-Threatening, Hospitalization, Other)
  Sender: FDA-Public Use
  Company Number: US-NOVOPROD-885016

PATIENT
  Sex: Male

DRUGS (1)
  1. LEVEMIR [Suspect]
     Active Substance: INSULIN DETEMIR
     Indication: Type 2 diabetes mellitus
     Dosage: 24 IU, BID
     Route: 058
     Dates: start: 2012

REACTIONS (4)
  - Cerebrovascular accident [Unknown]
  - End stage renal disease [Not Recovered/Not Resolved]
  - Cardiac operation [Unknown]
  - Hypertension [Unknown]

NARRATIVE: CASE EVENT DATE: 20180101
